FAERS Safety Report 16221071 (Version 2)
Quarter: 2019Q2

REPORT INFORMATION
  Report Type: Spontaneous
  Country: US (occurrence: US)
  Receive Date: 20190421
  Receipt Date: 20190424
  Transmission Date: 20190711
  Serious: No
  Sender: FDA-Public Use
  Company Number: US-ASTRAZENECA-2019SE48443

PATIENT
  Sex: Female
  Weight: 81.6 kg

DRUGS (3)
  1. INSULIN [Concomitant]
     Active Substance: INSULIN NOS
  2. BYDUREON BCISE [Suspect]
     Active Substance: EXENATIDE
     Indication: TYPE 2 DIABETES MELLITUS
     Route: 058
     Dates: start: 20190216
  3. AMOXICILLIN. [Concomitant]
     Active Substance: AMOXICILLIN
     Indication: SURGERY
     Route: 048
     Dates: start: 20190320

REACTIONS (9)
  - Injection site mass [Unknown]
  - Weight decreased [Unknown]
  - Incorrect dose administered [Unknown]
  - Injection site extravasation [Unknown]
  - Injection site haemorrhage [Recovered/Resolved]
  - Device issue [Unknown]
  - Blood glucose increased [Unknown]
  - Oropharyngeal pain [Unknown]
  - Dysphonia [Unknown]
